FAERS Safety Report 18287873 (Version 1)
Quarter: 2020Q3

REPORT INFORMATION
  Report Type: Spontaneous
  Country: US (occurrence: US)
  Receive Date: 20200918
  Receipt Date: 20200918
  Transmission Date: 20201103
  Serious: Yes (Other)
  Sender: FDA-Public Use
  Company Number: None

PATIENT
  Age: 29 Year
  Sex: Female
  Weight: 58 kg

DRUGS (1)
  1. NEXPLANON [Suspect]
     Active Substance: ETONOGESTREL
     Indication: CONTRACEPTION
     Dosage: ?          OTHER FREQUENCY:IMPLANT;?
     Route: 059
     Dates: start: 20190522, end: 20200911

REACTIONS (2)
  - Treatment failure [None]
  - Pregnancy with contraceptive device [None]

NARRATIVE: CASE EVENT DATE: 20200831
